FAERS Safety Report 5664789-6 (Version None)
Quarter: 2008Q1

REPORT INFORMATION
  Report Type: 
  Country: None (occurrence: None)
  Receive Date: 20080314
  Receipt Date: 20080307
  Transmission Date: 20080703
  Serious: Yes (Other)
  Sender: FDA-Public Use
  Company Number: GB-ROCHE-552072

PATIENT
  Age: 54 Year
  Sex: Male
  Weight: 122.5 kg

DRUGS (4)
  1. ORLISTAT [Suspect]
     Indication: OBESITY
     Route: 048
     Dates: start: 20080215
  2. ASPIRIN [Concomitant]
     Indication: ANTICOAGULANT THERAPY
     Dosage: FORMULATION OF ASPIRIN REPORTED AS DISPERSIBLE
     Route: 048
     Dates: start: 20071201
  3. SIMVASTATIN [Concomitant]
     Route: 048
     Dates: start: 20071201
  4. RAMIPRIL [Concomitant]
     Route: 048
     Dates: start: 20071201

REACTIONS (1)
  - ARTERIAL OCCLUSIVE DISEASE [None]
